FAERS Safety Report 5083355-7 (Version None)
Quarter: 2006Q3

REPORT INFORMATION
  Report Type: 
  Country: None (occurrence: None)
  Receive Date: 20060818
  Receipt Date: 20060809
  Transmission Date: 20061208
  Serious: Yes (Hospitalization)
  Sender: FDA-Public Use
  Company Number: JP-JNJFOC-20060602804

PATIENT
  Sex: Female
  Weight: 42 kg

DRUGS (14)
  1. INFLIXIMAB, RECOMBINANT [Suspect]
     Dosage: DOSE 3MG, 6MG, OR 10MG/KG
     Route: 042
  2. INFLIXIMAB, RECOMBINANT [Suspect]
     Route: 042
  3. INFLIXIMAB, RECOMBINANT [Suspect]
     Route: 042
  4. INFLIXIMAB, RECOMBINANT [Suspect]
     Indication: RHEUMATOID ARTHRITIS
     Route: 042
  5. RHEUMATREX [Suspect]
     Indication: RHEUMATOID ARTHRITIS
     Dosage: DOSE ^3 TIMES WEEKLY AT 6 MG/WEEK^
     Route: 048
  6. PREDNISOLONE [Concomitant]
     Indication: ANALGESIC EFFECT
     Dosage: DOSE ^10MG/DAY IN TWO DIVIDED DOSES^
     Route: 048
  7. PREDNISOLONE [Concomitant]
     Indication: RHEUMATOID ARTHRITIS
     Dosage: DOSE ^7MG/DAY IN TWO DIVIDED DOSES^
     Route: 048
  8. VOLTAREN [Concomitant]
     Indication: ANALGESIC EFFECT
     Route: 054
  9. VOLTAREN [Concomitant]
     Indication: RHEUMATOID ARTHRITIS
     Dosage: ^TWICE DAILY AT 50MG/DAY^
     Route: 054
  10. TAGAMET [Concomitant]
     Indication: PROPHYLAXIS AGAINST GASTROINTESTINAL ULCER
     Dosage: ^3 TIMES DAILY AT 600MG/DAY^
     Route: 048
  11. AMOBAN [Concomitant]
     Indication: INSOMNIA
     Dosage: START DATE BEFORE 19-JAN-06
     Route: 048
  12. SANCOBA [Concomitant]
     Indication: CATARACT
     Dosage: ^ADEQUATE DOSE^
     Route: 031
  13. CATALIN [Concomitant]
     Indication: CATARACT
     Dosage: ^ADEQUATE DOSE^ IN THREE DIVIDED DOSES
     Route: 031
  14. LORNOXICAM [Concomitant]
     Indication: ANALGESIC EFFECT
     Dosage: ^TWICE DAILY AT 8MG/DAY^
     Route: 048

REACTIONS (2)
  - GASTRIC ULCER PERFORATION [None]
  - PNEUMONITIS CRYPTOCOCCAL [None]
